FAERS Safety Report 5444640-X (Version None)
Quarter: 2007Q3

REPORT INFORMATION
  Report Type: 
  Country: None (occurrence: None)
  Receive Date: 20070906
  Receipt Date: 20070625
  Transmission Date: 20080115
  Serious: No
  Sender: FDA-Public Use
  Company Number: A0624555A

PATIENT
  Age: 59 Year
  Sex: Female

DRUGS (16)
  1. REQUIP [Suspect]
     Indication: RESTLESS LEGS SYNDROME
     Dosage: 1MG PER DAY
     Route: 048
     Dates: start: 20060101
  2. FOSAMAX [Concomitant]
  3. ACTOS [Concomitant]
  4. LOVASTATIN [Concomitant]
  5. IRON [Concomitant]
  6. VITAMIN E [Concomitant]
  7. ASPIRIN [Concomitant]
  8. FISH OIL [Concomitant]
  9. ASCORBIC ACID [Concomitant]
  10. VITAMIN B COMPLEX CAP [Concomitant]
  11. MULTI-VITAMIN [Concomitant]
  12. CALCIUM [Concomitant]
  13. VITAMIN D [Concomitant]
  14. TRAMADOL HCL [Concomitant]
  15. CYMBALTA [Concomitant]
  16. METFORMIN HCL [Concomitant]

REACTIONS (3)
  - DRUG INEFFECTIVE [None]
  - RESTLESS LEGS SYNDROME [None]
  - WEIGHT INCREASED [None]
